FAERS Safety Report 4782958-4 (Version None)
Quarter: 2005Q3

REPORT INFORMATION
  Report Type: 
  Country: None (occurrence: None)
  Receive Date: 20050928
  Receipt Date: 20050928
  Transmission Date: 20060218
  Serious: Yes (Other)
  Sender: FDA-Public Use
  Company Number: None

PATIENT
  Age: 57 Year
  Sex: Male
  Weight: 113.5 kg

DRUGS (19)
  1. VYTORIN [Suspect]
     Indication: HYPERLIPIDAEMIA
     Dates: start: 20050429, end: 20050606
  2. AMITRIPTYLINE HCL [Concomitant]
  3. CITALOPRAM HYDROBROMIDE [Concomitant]
  4. LANOXIN [Concomitant]
  5. DOCUSATE NA [Concomitant]
  6. FELODIPINE [Concomitant]
  7. FUROSEMIDE [Concomitant]
  8. HYDROCORTISONE [Concomitant]
  9. INSULIN NOVOLIN [Concomitant]
  10. LACTIC ACID 5% LOTION [Concomitant]
  11. LISINOPRIL [Concomitant]
  12. LORATADINE [Concomitant]
  13. METOPROLOL SUCCINATE [Concomitant]
  14. POVIDONE IODINE 10% TOP SOLN [Concomitant]
  15. MULTI-VITAMIN [Concomitant]
  16. SELENIUM SULFIDE [Concomitant]
  17. TOLNAFTATE [Concomitant]
  18. TRIAMCINOLONE ACETONIDE [Concomitant]
  19. SA [Concomitant]

REACTIONS (1)
  - HEADACHE [None]
